FAERS Safety Report 16903829 (Version 1)
Quarter: 2019Q4

REPORT INFORMATION
  Report Type: Spontaneous
  Country: US (occurrence: US)
  Receive Date: 20191010
  Receipt Date: 20191010
  Transmission Date: 20200122
  Serious: No
  Sender: FDA-Public Use
  Company Number: US-TEVA-2019-US-1118674

PATIENT
  Sex: Female

DRUGS (1)
  1. MUPIROCIN. [Suspect]
     Active Substance: MUPIROCIN
     Indication: STAPHYLOCOCCAL INFECTION
     Route: 065

REACTIONS (6)
  - Nasal discomfort [Unknown]
  - Cough [Unknown]
  - Inappropriate schedule of product administration [Unknown]
  - Rhinorrhoea [Unknown]
  - Throat irritation [Unknown]
  - Upper-airway cough syndrome [Unknown]
